FAERS Safety Report 9130880 (Version 2)
Quarter: 2013Q2

REPORT INFORMATION
  Report Type: Spontaneous
  Country: JP (occurrence: JP)
  Receive Date: 20130301
  Receipt Date: 20130619
  Transmission Date: 20140414
  Serious: Yes (Death)
  Sender: FDA-Public Use
  Company Number: JP-SANOFI-AVENTIS-2013SA017190

PATIENT
  Age: 55 Year
  Sex: Female
  Weight: 48.4 kg

DRUGS (13)
  1. LASIX [Suspect]
     Indication: GENERALISED OEDEMA
     Route: 065
     Dates: start: 20120612, end: 20120621
  2. THYMOGLOBULINE /FRA/ [Suspect]
     Indication: APLASTIC ANAEMIA
     Route: 042
     Dates: start: 20120611, end: 20120615
  3. NEORAL [Suspect]
     Indication: APLASTIC ANAEMIA
     Route: 065
     Dates: start: 20120611, end: 20120625
  4. CRAVIT [Suspect]
     Indication: INFECTION PROPHYLAXIS
     Route: 065
     Dates: start: 20120611, end: 20120626
  5. ZOVIRAX [Suspect]
     Indication: INFECTION PROPHYLAXIS
     Route: 065
     Dates: start: 20120611, end: 20120705
  6. BIOFERMIN R [Suspect]
     Indication: DIARRHOEA
     Route: 065
     Dates: start: 20120613, end: 20120705
  7. ALDACTONE-A [Suspect]
     Indication: OEDEMA
     Route: 065
     Dates: start: 20120614, end: 20120621
  8. MAXIPIME [Suspect]
     Indication: SEPSIS
     Route: 065
     Dates: start: 20120607, end: 20120611
  9. FLUCONAZOLE [Suspect]
     Indication: INFECTION PROPHYLAXIS
     Route: 042
     Dates: start: 20120607, end: 20120704
  10. ZYVOX [Suspect]
     Indication: SEPSIS
     Route: 065
     Dates: start: 20120608, end: 20120611
  11. NEUTROGIN [Suspect]
     Indication: APLASTIC ANAEMIA
     Route: 065
     Dates: start: 20120608, end: 20120614
  12. SOLU-MEDROL [Suspect]
     Indication: PROPHYLAXIS
     Route: 042
     Dates: start: 20120611, end: 20120615
  13. ZOSYN [Suspect]
     Indication: SEPSIS
     Route: 042
     Dates: start: 20120612, end: 20120618

REACTIONS (14)
  - Hepatitis acute [Fatal]
  - Jaundice [Fatal]
  - Transaminases increased [Fatal]
  - Oedema [None]
  - Diarrhoea [None]
  - Disease recurrence [None]
  - Multi-organ failure [None]
  - Hepatic failure [None]
  - Cerebral infarction [None]
  - Brain oedema [None]
  - Mixed liver injury [None]
  - Cytomegalovirus infection [None]
  - Diffuse alveolar damage [None]
  - Ascites [None]
